FAERS Safety Report 14875239 (Version 2)
Quarter: 2018Q2

REPORT INFORMATION
  Report Type: Spontaneous
  Country: ES (occurrence: ES)
  Receive Date: 20180510
  Receipt Date: 20180608
  Transmission Date: 20180711
  Serious: Yes (Other)
  Sender: FDA-Public Use
  Company Number: ES-PFIZER INC-2018185413

PATIENT
  Age: 79 Year
  Sex: Female

DRUGS (1)
  1. CARDURAN NEO [Suspect]
     Active Substance: DOXAZOSIN MESYLATE
     Indication: HYPERTENSION
     Dosage: 4 MG, 1X/DAY (EVERY 24 HOURS)
     Route: 048
     Dates: start: 20180213, end: 20180220

REACTIONS (2)
  - Dizziness [Recovered/Resolved]
  - Choking [Recovered/Resolved]

NARRATIVE: CASE EVENT DATE: 201802
